FAERS Safety Report 9925355 (Version 1)
Quarter: 2014Q1

REPORT INFORMATION
  Report Type: Spontaneous
  Country: US (occurrence: US)
  Receive Date: 20140226
  Receipt Date: 20140226
  Transmission Date: 20141002
  Serious: Yes (Other)
  Sender: FDA-Public Use
  Company Number: US-JNJFOC-20140211477

PATIENT
  Age: 53 Year
  Sex: Female
  Weight: 113.4 kg

DRUGS (10)
  1. INVOKANA [Suspect]
     Indication: DIABETES MELLITUS
     Route: 048
     Dates: start: 20140214
  2. VERAPAMIL [Concomitant]
     Indication: HYPERTENSION
     Route: 048
  3. LOSARTAN POTASSIUM [Concomitant]
     Indication: HYPERTENSION
     Route: 048
  4. METHYLPHENIDATE [Concomitant]
     Indication: NARCOLEPSY
     Route: 048
  5. CLONAZEPAM [Concomitant]
     Indication: NARCOLEPSY
     Route: 048
  6. METFORMIN HCL [Concomitant]
     Indication: DIABETES MELLITUS
     Route: 048
     Dates: start: 201204
  7. SIMVASTATIN [Concomitant]
     Indication: BLOOD CHOLESTEROL
     Route: 048
     Dates: start: 201204
  8. FUROSEMIDE [Concomitant]
     Indication: DIURETIC THERAPY
     Route: 048
     Dates: start: 201110
  9. VICTOZA [Concomitant]
     Indication: DIABETES MELLITUS
     Route: 058
     Dates: start: 201312
  10. ADVIL [Concomitant]

REACTIONS (3)
  - Confusional state [Not Recovered/Not Resolved]
  - Thirst [Not Recovered/Not Resolved]
  - Disturbance in attention [Not Recovered/Not Resolved]
